FAERS Safety Report 20902449 (Version 1)
Quarter: 2022Q2

REPORT INFORMATION
  Report Type: Spontaneous
  Country: US (occurrence: US)
  Receive Date: 20220601
  Receipt Date: 20220601
  Transmission Date: 20220720
  Serious: No
  Sender: FDA-Public Use
  Company Number: US-PFIZER INC-202200772163

PATIENT
  Age: 61 Year
  Sex: Female

DRUGS (14)
  1. PAXLOVID [Suspect]
     Active Substance: NIRMATRELVIR\RITONAVIR
     Indication: COVID-19 treatment
     Dosage: UNK
     Dates: start: 20220518, end: 20220522
  2. OLUMIANT [Concomitant]
     Active Substance: BARICITINIB
     Dosage: UNK
     Dates: start: 20220301, end: 20220517
  3. FEXOFENADINE [Concomitant]
     Active Substance: FEXOFENADINE HYDROCHLORIDE
     Dosage: UNK
     Dates: start: 20211201, end: 20220529
  4. ROPINIROLE [Concomitant]
     Active Substance: ROPINIROLE
     Dosage: UNK
     Dates: start: 20220329, end: 20220529
  5. LIVALO [Concomitant]
     Active Substance: PITAVASTATIN CALCIUM
     Dosage: UNK
     Dates: start: 20200301, end: 20220529
  6. SYNTHROID [Concomitant]
     Active Substance: LEVOTHYROXINE SODIUM
     Dosage: UNK
     Dates: start: 20170101, end: 20220529
  7. METOPROLOL [Concomitant]
     Active Substance: METOPROLOL
     Dosage: UNK
     Dates: start: 20170101, end: 20220529
  8. OMEPRAZOLE [Concomitant]
     Active Substance: OMEPRAZOLE
     Dosage: UNK
     Dates: start: 20200101, end: 20220529
  9. ATOMOXETINE [Concomitant]
     Active Substance: ATOMOXETINE
     Dosage: UNK
     Dates: start: 20070101, end: 20220529
  10. BUPROPION [Concomitant]
     Active Substance: BUPROPION
     Dosage: UNK
     Dates: start: 20211101, end: 20220529
  11. TRAZODONE [Concomitant]
     Active Substance: TRAZODONE HYDROCHLORIDE
     Dosage: UNK
     Dates: start: 20200501, end: 20220517
  12. COQ10 + D3 [Concomitant]
     Dosage: UNK
     Dates: start: 20170101, end: 20220529
  13. OMEGA-3 FATTY ACIDS [Concomitant]
     Active Substance: OMEGA-3 FATTY ACIDS
     Dosage: UNK
     Dates: start: 20170101, end: 20220529
  14. L-LYSINE [LYSINE] [Concomitant]
     Dosage: UNK
     Dates: start: 20170101, end: 20220529

REACTIONS (2)
  - COVID-19 [Not Recovered/Not Resolved]
  - Disease recurrence [Not Recovered/Not Resolved]

NARRATIVE: CASE EVENT DATE: 20220527
